FAERS Safety Report 5339094-8 (Version None)
Quarter: 2007Q2

REPORT INFORMATION
  Report Type: 
  Country: None (occurrence: None)
  Receive Date: 20070530
  Receipt Date: 20070518
  Transmission Date: 20071010
  Serious: Yes (Disabling, Other)
  Sender: FDA-Public Use
  Company Number: FR-PFIZER INC-2007040900

PATIENT
  Sex: Male

DRUGS (4)
  1. CHAMPIX [Suspect]
  2. PLAVIX [Concomitant]
  3. KARDEGIC [Concomitant]
  4. PENTOXIFYLLINE [Concomitant]

REACTIONS (1)
  - PAIN IN EXTREMITY [None]
